FAERS Safety Report 6155122-4 (Version None)
Quarter: 2009Q2

REPORT INFORMATION
  Report Type: 
  Country: None (occurrence: None)
  Receive Date: 20090414
  Receipt Date: 20070625
  Transmission Date: 20091009
  Serious: Yes (Other)
  Sender: FDA-Public Use
  Company Number: US-ASTRAZENECA-2006UW24739

PATIENT
  Age: 8174 Day
  Sex: Female
  Weight: 107.5 kg

DRUGS (12)
  1. SEROQUEL [Suspect]
     Route: 048
  2. SEROQUEL [Suspect]
     Route: 048
     Dates: start: 20040909
  3. PAXIL [Concomitant]
     Dates: start: 20020101
  4. DESYREL [Concomitant]
     Dates: start: 20020101
  5. ALBUTEROL [Concomitant]
  6. LISINOPRIL [Concomitant]
  7. DOXYCYCLINE [Concomitant]
  8. METFORMIN HCL [Concomitant]
  9. OMACOR [Concomitant]
  10. DILANTIN [Concomitant]
  11. ASPIRIN [Concomitant]
  12. AMARYL [Concomitant]

REACTIONS (21)
  - ABDOMINAL PAIN [None]
  - ANOREXIA [None]
  - ASTHMA [None]
  - BRONCHITIS [None]
  - CONVULSION [None]
  - DIABETES MELLITUS [None]
  - DIARRHOEA [None]
  - DIZZINESS [None]
  - DYSPNOEA [None]
  - FATIGUE [None]
  - GENERALISED ANXIETY DISORDER [None]
  - HEADACHE [None]
  - HIRSUTISM [None]
  - HYPERTENSION [None]
  - HYPERTRIGLYCERIDAEMIA [None]
  - PYREXIA [None]
  - SLEEP APNOEA SYNDROME [None]
  - TRANSIENT ISCHAEMIC ATTACK [None]
  - URINARY TRACT INFECTION [None]
  - VERTIGO [None]
  - VOMITING [None]
